FAERS Safety Report 16684280 (Version 1)
Quarter: 2019Q3

REPORT INFORMATION
  Report Type: Spontaneous
  Country: US (occurrence: US)
  Receive Date: 20190808
  Receipt Date: 20190808
  Transmission Date: 20191004
  Serious: Yes (Other)
  Sender: FDA-Public Use
  Company Number: US-PTC THERAPEUTICS, INC.-US-2019PTC001214

PATIENT

DRUGS (1)
  1. EMFLAZA [Suspect]
     Active Substance: DEFLAZACORT
     Indication: DUCHENNE MUSCULAR DYSTROPHY
     Dosage: 6 MG, QD
     Route: 048
     Dates: start: 20170517

REACTIONS (3)
  - Cardiac valve sclerosis [Unknown]
  - Mitral valve incompetence [Unknown]
  - Oedema peripheral [Unknown]

NARRATIVE: CASE EVENT DATE: 20190717
